FAERS Safety Report 8470995-8 (Version None)
Quarter: 2012Q2

REPORT INFORMATION
  Report Type: 
  Country: None (occurrence: None)
  Receive Date: 20120323
  Receipt Date: 20111128
  Transmission Date: 20120825
  Serious: Yes (Hospitalization)
  Sender: FDA-Public Use
  Company Number: 163-21880-11110681

PATIENT
  Age: 83 Year
  Sex: Female

DRUGS (8)
  1. CALTRATE 600 WITH D (CALCITE D) [Concomitant]
  2. ENALAPRIL MALEATE [Concomitant]
  3. DEXAMETHASONE [Concomitant]
  4. ASPIRIN [Concomitant]
  5. ZOMETA [Concomitant]
  6. REVLIMID [Suspect]
     Indication: MULTIPLE MYELOMA
     Dosage: 25 MG, DIALY X 21 DAYS ON, 7 DAYS
     Dates: start: 20090217, end: 20111030
  7. SYNTHROID [Concomitant]
  8. DUONEB [Concomitant]

REACTIONS (1)
  - PNEUMONIA [None]
